FAERS Safety Report 24890838 (Version 1)
Quarter: 2025Q1

REPORT INFORMATION
  Report Type: Spontaneous
  Country: GB (occurrence: GB)
  Receive Date: 20250127
  Receipt Date: 20250127
  Transmission Date: 20250409
  Serious: Yes (Other)
  Sender: ORGANON
  Company Number: None

PATIENT
  Age: 44 Year
  Sex: Female
  Weight: 47 kg

DRUGS (1)
  1. MIRTAZAPINE [Suspect]
     Active Substance: MIRTAZAPINE

REACTIONS (1)
  - Genital discomfort [Recovered/Resolved]
